FAERS Safety Report 17265885 (Version 1)
Quarter: 2020Q1

REPORT INFORMATION
  Report Type: Spontaneous
  Country: US (occurrence: US)
  Receive Date: 20200114
  Receipt Date: 20200114
  Transmission Date: 20200409
  Serious: No
  Sender: FDA-Public Use
  Company Number: US-ALLERGAN-1900569US

PATIENT
  Sex: Male

DRUGS (2)
  1. DALVANCE [Suspect]
     Active Substance: DALBAVANCIN
     Indication: ARTHRITIS BACTERIAL
     Dosage: UNK, SINGLE
     Route: 065
     Dates: start: 20190104, end: 20190104
  2. DALVANCE [Suspect]
     Active Substance: DALBAVANCIN
     Indication: LOCALISED INFECTION

REACTIONS (1)
  - Infusion site extravasation [Not Recovered/Not Resolved]

NARRATIVE: CASE EVENT DATE: 20190104
